FAERS Safety Report 8184250-7 (Version None)
Quarter: 2012Q1

REPORT INFORMATION
  Report Type: 
  Country: None (occurrence: None)
  Receive Date: 20120305
  Receipt Date: 20120222
  Transmission Date: 20120608
  Serious: Yes (Hospitalization, Other)
  Sender: FDA-Public Use
  Company Number: FR-JNJFOC-20120205314

PATIENT
  Age: 30 Year
  Sex: Male

DRUGS (3)
  1. ATHYMIL [Suspect]
     Indication: DEPRESSION
     Route: 065
  2. RISPERDAL CONSTA [Suspect]
     Indication: PSYCHOTIC DISORDER
     Route: 030
  3. RISPERDAL [Suspect]
     Indication: PSYCHOTIC DISORDER
     Route: 065

REACTIONS (3)
  - DISTURBANCE IN SOCIAL BEHAVIOUR [None]
  - HYPOTHERMIA [None]
  - SUICIDE ATTEMPT [None]
